FAERS Safety Report 8433224-7 (Version None)
Quarter: 2012Q2

REPORT INFORMATION
  Report Type: 
  Country: None (occurrence: None)
  Receive Date: 20120613
  Receipt Date: 20120604
  Transmission Date: 20120825
  Serious: Yes (Hospitalization)
  Sender: FDA-Public Use
  Company Number: US-GLAXOSMITHKLINE-Z0014706A

PATIENT
  Age: 77 Year
  Sex: Male
  Weight: 76.6 kg

DRUGS (2)
  1. PAZOPANIB [Suspect]
     Indication: RENAL CELL CARCINOMA
     Dosage: 800MG PER DAY
     Route: 048
     Dates: start: 20091001
  2. NS [Concomitant]
     Indication: DEHYDRATION
     Dosage: 1000ML SINGLE DOSE
     Route: 042
     Dates: start: 20120303, end: 20120303

REACTIONS (1)
  - CONFUSIONAL STATE [None]
